FAERS Safety Report 6239256-1 (Version None)
Quarter: 2009Q2

REPORT INFORMATION
  Report Type: 
  Country: None (occurrence: None)
  Receive Date: 20090622
  Receipt Date: 20090617
  Transmission Date: 20091009
  Serious: Yes (Other)
  Sender: FDA-Public Use
  Company Number: JP-AVENTIS-200911718JP

PATIENT
  Age: 62 Year
  Sex: Male

DRUGS (3)
  1. LANTUS [Suspect]
     Indication: DIABETES MELLITUS
     Dosage: DOSE: 2 UNITS
     Route: 058
     Dates: start: 20090604
  2. MELBIN                             /00082702/ [Concomitant]
     Route: 048
  3. NOVORAPID [Concomitant]
     Dosage: DOSE: 4 UNITS( 2-0-2-0)
     Route: 058
     Dates: start: 20090611

REACTIONS (1)
  - HEPATIC FUNCTION ABNORMAL [None]
